FAERS Safety Report 6456885-0 (Version None)
Quarter: 2009Q4

REPORT INFORMATION
  Report Type: 
  Country: None (occurrence: None)
  Receive Date: 20091125
  Receipt Date: 20091123
  Transmission Date: 20100525
  Serious: Yes (Death)
  Sender: FDA-Public Use
  Company Number: US-GILEAD-2009-0025650

PATIENT
  Sex: Female
  Weight: 67.646 kg

DRUGS (2)
  1. LETAIRIS [Suspect]
     Indication: PULMONARY ARTERIAL HYPERTENSION
     Route: 048
     Dates: start: 20081217, end: 20091120
  2. AMBIEN [Concomitant]

REACTIONS (1)
  - DEATH [None]
